FAERS Safety Report 6458840-3 (Version None)
Quarter: 2009Q4

REPORT INFORMATION
  Report Type: 
  Country: None (occurrence: None)
  Receive Date: 20091125
  Receipt Date: 20091125
  Transmission Date: 20100525
  Serious: Yes (Hospitalization)
  Sender: FDA-Public Use
  Company Number: None

PATIENT
  Sex: Female
  Weight: 49.8957 kg

DRUGS (2)
  1. SYNTHROID [Suspect]
  2. SYNTHROID [Suspect]

REACTIONS (11)
  - ABDOMINAL PAIN UPPER [None]
  - CHEST DISCOMFORT [None]
  - CHEST PAIN [None]
  - FATIGUE [None]
  - HEADACHE [None]
  - HYPERTENSION [None]
  - IRRITABILITY [None]
  - MUSCLE SPASMS [None]
  - MUSCULAR WEAKNESS [None]
  - PRODUCT QUALITY ISSUE [None]
  - SLEEP DISORDER [None]
